FAERS Safety Report 14078366 (Version 1)
Quarter: 2017Q4

REPORT INFORMATION
  Report Type: Spontaneous
  Country: US (occurrence: US)
  Receive Date: 20171012
  Receipt Date: 20171012
  Transmission Date: 20180321
  Serious: No
  Sender: FDA-Public Use
  Company Number: US-PFIZER INC-2017438839

PATIENT
  Age: 10 Year
  Sex: Male
  Weight: 29.48 kg

DRUGS (1)
  1. GENOTROPIN [Suspect]
     Active Substance: SOMATROPIN
     Dosage: 1.6 FOR ONE WEEK, ALTERNATING WITH 1.8 THE NEXT WEEK
     Dates: start: 2011

REACTIONS (2)
  - Headache [Not Recovered/Not Resolved]
  - Intentional product misuse [Unknown]
